FAERS Safety Report 21265128 (Version 1)
Quarter: 2022Q3

REPORT INFORMATION
  Report Type: Spontaneous
  Country: CA (occurrence: CA)
  Receive Date: 20220829
  Receipt Date: 20220829
  Transmission Date: 20221026
  Serious: Yes (Other)
  Sender: FDA-Public Use
  Company Number: CA-SAMSUNG BIOEPIS-SB-2022-21400

PATIENT
  Age: 69 Year
  Sex: Female

DRUGS (2)
  1. INFLIXIMAB [Suspect]
     Active Substance: INFLIXIMAB
     Indication: Crohn^s disease
     Dosage: FREQUENCY - 1 CYCLICAL
     Route: 042
  2. INFLIXIMAB [Suspect]
     Active Substance: INFLIXIMAB
     Indication: Colitis ulcerative
     Dosage: FREQUENCY - 1 CYCLICAL
     Route: 042

REACTIONS (5)
  - Constipation [Recovered/Resolved]
  - Fall [Recovered/Resolved]
  - Surgery [Recovered/Resolved]
  - Upper limb fracture [Recovered/Resolved]
  - Off label use [Recovered/Resolved]
